FAERS Safety Report 17520912 (Version 6)
Quarter: 2022Q3

REPORT INFORMATION
  Report Type: Report from Study
  Country: IL (occurrence: IL)
  Receive Date: 20200309
  Receipt Date: 20220930
  Transmission Date: 20221027
  Serious: Yes (Death, Hospitalization)
  Sender: FDA-Public Use
  Company Number: IL-ABBVIE-20K-082-3311113-00

PATIENT
  Age: 83 Year
  Sex: Male
  Weight: 63 kg

DRUGS (16)
  1. VENCLEXTA [Suspect]
     Active Substance: VENETOCLAX
     Indication: Acute myeloid leukaemia
     Dosage: RAMP UP
     Route: 048
     Dates: start: 20200216, end: 20200216
  2. VENCLEXTA [Suspect]
     Active Substance: VENETOCLAX
     Indication: Acute myeloid leukaemia
     Dosage: RAMP UP
     Route: 048
     Dates: start: 20200217, end: 20200218
  3. VENCLEXTA [Suspect]
     Active Substance: VENETOCLAX
     Indication: Acute myeloid leukaemia
     Dosage: MODIFICATION TO THE DAILY DOSE
     Route: 048
     Dates: start: 20200219, end: 20200219
  4. VENCLEXTA [Suspect]
     Active Substance: VENETOCLAX
     Indication: Acute myeloid leukaemia
     Dosage: MODIFICATION TO THE DAILY DOSE
     Route: 048
     Dates: start: 20200220, end: 20200306
  5. AZACITIDINE [Suspect]
     Active Substance: AZACITIDINE
     Indication: Product used for unknown indication
     Dosage: CYCLE 1
     Route: 058
     Dates: start: 20200216, end: 20200222
  6. CHOLECALCIFEROL [Concomitant]
     Active Substance: CHOLECALCIFEROL
     Indication: Vitamin supplementation
     Dates: start: 20141022, end: 20200306
  7. ENALAPRIL MALEATE [Concomitant]
     Active Substance: ENALAPRIL MALEATE
     Indication: Hypertension
     Dates: start: 20141022, end: 20200306
  8. EZETIMIBE [Concomitant]
     Active Substance: EZETIMIBE
     Indication: Dyslipidaemia
     Dates: start: 20141022, end: 20200306
  9. EZETIMIBE [Concomitant]
     Active Substance: EZETIMIBE
     Indication: Dyslipidaemia
     Dates: start: 20141022, end: 20200306
  10. LIPITOR [Concomitant]
     Active Substance: ATORVASTATIN CALCIUM
     Indication: Dyslipidaemia
     Dates: start: 20141022, end: 20200306
  11. LIPITOR [Concomitant]
     Active Substance: ATORVASTATIN CALCIUM
     Indication: Dyslipidaemia
     Dates: start: 20141022, end: 20200306
  12. ATENOLOL [Concomitant]
     Active Substance: ATENOLOL
     Indication: Hypertension
     Dates: start: 20141022, end: 20200306
  13. ALLOPURINOL [Concomitant]
     Active Substance: ALLOPURINOL
     Indication: Prophylaxis
     Dates: start: 20200216, end: 20200306
  14. CIPRODEX [Concomitant]
     Active Substance: CIPROFLOXACIN HYDROCHLORIDE\DEXAMETHASONE
     Indication: Infection prophylaxis
     Dates: start: 20200224, end: 20200306
  15. FLUCONAZOLE [Concomitant]
     Active Substance: FLUCONAZOLE
     Indication: Infection prophylaxis
     Dates: start: 20200220, end: 20200306
  16. NEUPOGEN [Concomitant]
     Active Substance: FILGRASTIM
     Indication: Neutropenia
     Dates: start: 20200306, end: 20200306

REACTIONS (7)
  - Haemodynamic instability [Fatal]
  - Septic shock [Fatal]
  - Febrile neutropenia [Recovered/Resolved]
  - Urinary tract obstruction [Not Recovered/Not Resolved]
  - Oedema peripheral [Not Recovered/Not Resolved]
  - Hypokalaemia [Recovered/Resolved]
  - Injection site reaction [Unknown]

NARRATIVE: CASE EVENT DATE: 20200101
